FAERS Safety Report 6147166-3 (Version None)
Quarter: 2009Q2

REPORT INFORMATION
  Report Type: 
  Country: None (occurrence: None)
  Receive Date: 20090407
  Receipt Date: 20080603
  Transmission Date: 20091009
  Serious: Yes (Death)
  Sender: FDA-Public Use
  Company Number: US-TYCO HEALTHCARE/MALLINCKRODT-T200800944

PATIENT

DRUGS (2)
  1. METHADOSE [Suspect]
     Indication: DRUG DEPENDENCE
  2. HEROIN [Suspect]
     Indication: DRUG DEPENDENCE

REACTIONS (1)
  - CONVULSION [None]
